FAERS Safety Report 10013999 (Version 2)
Quarter: 2014Q1

REPORT INFORMATION
  Report Type: Report from Study
  Country: US (occurrence: US)
  Receive Date: 20140317
  Receipt Date: 20140317
  Transmission Date: 20141002
  Serious: Yes (Other)
  Sender: FDA-Public Use
  Company Number: US-JNJFOC-20130610697

PATIENT
  Age: 65 Year
  Sex: Male
  Weight: 106.14 kg

DRUGS (10)
  1. ZYTIGA [Suspect]
     Indication: PROSTATE CANCER
     Route: 048
     Dates: start: 20130316, end: 20140301
  2. PREDNISONE [Concomitant]
     Route: 048
     Dates: start: 20140302
  3. PREDNISONE [Concomitant]
     Route: 048
     Dates: start: 20130316, end: 20140301
  4. FUROSEMIDE [Concomitant]
     Indication: BLOOD PRESSURE
     Route: 048
  5. SERTRALINE [Concomitant]
     Indication: DEPRESSION
     Route: 048
     Dates: start: 2005
  6. LOSARTAN [Concomitant]
     Indication: BLOOD PRESSURE
     Route: 048
  7. FENOFIBRIC ACID [Concomitant]
     Indication: BLOOD TRIGLYCERIDES
     Route: 048
  8. OXYCONTIN [Concomitant]
     Indication: PAIN
     Route: 048
  9. TYLENOL [Concomitant]
     Indication: ARTHRITIS
     Route: 048
  10. ASPIRIN [Concomitant]
     Route: 048

REACTIONS (3)
  - Bone neoplasm [Not Recovered/Not Resolved]
  - Prostatic specific antigen increased [Not Recovered/Not Resolved]
  - Drug ineffective [Unknown]
